FAERS Safety Report 7988270-4 (Version None)
Quarter: 2011Q4

REPORT INFORMATION
  Report Type: 
  Country: None (occurrence: None)
  Receive Date: 20111216
  Receipt Date: 20110913
  Transmission Date: 20120403
  Serious: No
  Sender: FDA-Public Use
  Company Number: US-ABBOTT-11P-163-0855417-00

PATIENT
  Sex: Female

DRUGS (2)
  1. PROMETRIUM [Suspect]
     Indication: MENOPAUSAL SYMPTOMS
     Dates: start: 20110101, end: 20110101
  2. VIVELLE [Suspect]
     Indication: PRODUCT USED FOR UNKNOWN INDICATION
     Dosage: PATCH
     Route: 062
     Dates: start: 20110101, end: 20110101

REACTIONS (6)
  - MUSCULAR WEAKNESS [None]
  - DYSPHAGIA [None]
  - DYSSTASIA [None]
  - DIZZINESS [None]
  - HYPOTONIA [None]
  - ASTHENIA [None]
